FAERS Safety Report 7245006-2 (Version None)
Quarter: 2011Q1

REPORT INFORMATION
  Report Type: 
  Country: None (occurrence: None)
  Receive Date: 20110126
  Receipt Date: 20110117
  Transmission Date: 20110831
  Serious: Yes (Hospitalization)
  Sender: FDA-Public Use
  Company Number: US-JNJFOC-20101202651

PATIENT
  Sex: Male

DRUGS (3)
  1. IMMUNOGLOBULINS [Concomitant]
     Indication: KAWASAKI'S DISEASE
  2. BLINDED; INFLIXIMAB, RECOMBINANT [Suspect]
     Indication: KAWASAKI'S DISEASE
     Route: 042
  3. PLACEBO [Suspect]
     Indication: KAWASAKI'S DISEASE
     Route: 042

REACTIONS (4)
  - DYSURIA [None]
  - PYREXIA [None]
  - OEDEMA PERIPHERAL [None]
  - VIRAL INFECTION [None]
